FAERS Safety Report 7977175-0 (Version None)
Quarter: 2011Q4

REPORT INFORMATION
  Report Type: 
  Country: None (occurrence: None)
  Receive Date: 20111213
  Receipt Date: 20111109
  Transmission Date: 20120403
  Serious: No
  Sender: FDA-Public Use
  Company Number: US-AMGEN-USASP2011058806

PATIENT
  Age: 63 Year
  Sex: Male

DRUGS (3)
  1. ENBREL [Suspect]
     Indication: PSORIASIS
  2. ENBREL [Suspect]
     Indication: RHEUMATOID ARTHRITIS
  3. ENBREL [Suspect]
     Indication: PSORIATIC ARTHROPATHY
     Dosage: 50 MG, QWK
     Dates: start: 20030101

REACTIONS (7)
  - PSORIATIC ARTHROPATHY [None]
  - FATIGUE [None]
  - EAR INFECTION [None]
  - PSORIASIS [None]
  - OROPHARYNGEAL PAIN [None]
  - ASTHENIA [None]
  - THERAPEUTIC RESPONSE DECREASED [None]
